FAERS Safety Report 13830137 (Version 2)
Quarter: 2017Q3

REPORT INFORMATION
  Report Type: Report from Study
  Country: US (occurrence: US)
  Receive Date: 20170803
  Receipt Date: 20170825
  Transmission Date: 20171127
  Serious: Yes (Death, Other)
  Sender: FDA-Public Use
  Company Number: US-GILEAD-2017-0286291

PATIENT
  Age: 85 Year
  Sex: Female

DRUGS (2)
  1. AMBRISENTAN [Suspect]
     Active Substance: AMBRISENTAN
     Indication: PULMONARY HYPERTENSION
     Dosage: 5 MG, QD
     Route: 048
     Dates: start: 20161210, end: 20170724
  2. AMBRISENTAN [Suspect]
     Active Substance: AMBRISENTAN
     Indication: SCLERODERMA

REACTIONS (2)
  - Pneumonitis [Fatal]
  - Interstitial lung disease [Fatal]
